APPROVED DRUG PRODUCT: FENOPROFEN CALCIUM
Active Ingredient: FENOPROFEN CALCIUM
Strength: EQ 400MG BASE
Dosage Form/Route: CAPSULE;ORAL
Application: A214475 | Product #001
Applicant: RISING PHARMA HOLDINGS INC
Approved: Jul 18, 2022 | RLD: No | RS: Yes | Type: RX